FAERS Safety Report 7522709-3 (Version None)
Quarter: 2011Q2

REPORT INFORMATION
  Report Type: 
  Country: None (occurrence: None)
  Receive Date: 20110603
  Receipt Date: 20110525
  Transmission Date: 20111010
  Serious: Yes (Other)
  Sender: FDA-Public Use
  Company Number: US-EISAI INC-E3810-04713-SPO-US

PATIENT
  Age: 51 Year
  Sex: Female

DRUGS (1)
  1. ACIPHEX [Suspect]
     Route: 048
     Dates: end: 20110523

REACTIONS (5)
  - HEART RATE INCREASED [None]
  - HYPOAESTHESIA [None]
  - AUTONOMIC NEUROPATHY [None]
  - HEADACHE [None]
  - DIZZINESS [None]
